FAERS Safety Report 23426466 (Version 1)
Quarter: 2024Q1

REPORT INFORMATION
  Report Type: Spontaneous
  Country: DE (occurrence: DE)
  Receive Date: 20240122
  Receipt Date: 20240122
  Transmission Date: 20240410
  Serious: Yes (Other)
  Sender: FDA-Public Use
  Company Number: DE-TORRENT-00026052

PATIENT
  Age: 33 Year
  Sex: Male
  Weight: 90 kg

DRUGS (2)
  1. ESCITALOPRAM [Suspect]
     Active Substance: ESCITALOPRAM OXALATE
     Indication: Product used for unknown indication
     Dosage: UNKNOWN
     Route: 065
  2. ESCITALOPRAM OXALATE [Suspect]
     Active Substance: ESCITALOPRAM OXALATE
     Indication: Product used for unknown indication
     Dosage: 1 TABLET IN THE MORNINGS
     Route: 065
     Dates: start: 2014, end: 20190211

REACTIONS (11)
  - Keratoconus [Recovering/Resolving]
  - Asthenopia [Unknown]
  - Night blindness [Unknown]
  - Impaired work ability [Unknown]
  - Impaired driving ability [Unknown]
  - Muscle tightness [Unknown]
  - Disturbance in attention [Unknown]
  - Tension headache [Unknown]
  - Photophobia [Unknown]
  - Fatigue [Unknown]
  - Performance status decreased [Unknown]
